FAERS Safety Report 6149990-X (Version None)
Quarter: 2009Q2

REPORT INFORMATION
  Report Type: 
  Country: None (occurrence: None)
  Receive Date: 20090409
  Receipt Date: 20090407
  Transmission Date: 20091009
  Serious: Yes (Other)
  Sender: FDA-Public Use
  Company Number: B0559794A

PATIENT
  Sex: Female
  Weight: 24 kg

DRUGS (4)
  1. RELENZA [Suspect]
     Indication: INFLUENZA
     Dosage: 10MG TWICE PER DAY
     Route: 055
     Dates: start: 20090212
  2. VENTOLIN [Suspect]
     Indication: INFLUENZA
     Dosage: 2MG THREE TIMES PER DAY
     Route: 048
     Dates: start: 20090212
  3. DASEN [Concomitant]
     Indication: INFLUENZA
     Dosage: 15MG PER DAY
     Route: 048
     Dates: start: 20090212
  4. BISOLVON [Concomitant]
     Dosage: 12MG PER DAY
     Route: 048
     Dates: start: 20090212

REACTIONS (10)
  - AGITATION [None]
  - DIZZINESS [None]
  - FEAR [None]
  - HALLUCINATION, AUDITORY [None]
  - ILLUSION [None]
  - NIGHTMARE [None]
  - NYSTAGMUS [None]
  - SOMNOLENCE [None]
  - TREMOR [None]
  - VISUAL IMPAIRMENT [None]
